FAERS Safety Report 9812674 (Version 2)
Quarter: 2014Q1

REPORT INFORMATION
  Report Type: Spontaneous
  Country: US (occurrence: US)
  Receive Date: 20140113
  Receipt Date: 20140213
  Transmission Date: 20141002
  Serious: Yes (Death, Hospitalization)
  Sender: FDA-Public Use
  Company Number: US-JNJFOC-20140104935

PATIENT
  Age: 66 Year
  Sex: Male
  Weight: 74 kg

DRUGS (20)
  1. IMBRUVICA [Suspect]
     Indication: MANTLE CELL LYMPHOMA
     Route: 048
     Dates: start: 20131205
  2. ASPIRIN [Concomitant]
     Indication: CARDIAC DISORDER
     Route: 048
  3. ATIVAN [Concomitant]
     Indication: NAUSEA
     Route: 048
  4. LIPITOR [Concomitant]
     Indication: CARDIOVASCULAR EVENT PROPHYLAXIS
  5. METOPROLOL [Concomitant]
     Indication: CARDIOVASCULAR EVENT PROPHYLAXIS
  6. PLAVIX [Concomitant]
     Indication: CARDIAC DISORDER
  7. VITAMIN D3 [Concomitant]
     Indication: VITAMIN D DEFICIENCY
  8. SENNA [Concomitant]
     Indication: CONSTIPATION
     Route: 048
  9. MIRALAX [Concomitant]
     Indication: CONSTIPATION
     Route: 048
  10. MULTIVITAMINS [Concomitant]
     Indication: VITAMIN SUPPLEMENTATION
     Route: 048
  11. ENSURE [Concomitant]
     Route: 048
  12. ACYCLOVIR [Concomitant]
     Indication: PROPHYLAXIS
  13. BACTRIM [Concomitant]
     Indication: PROPHYLAXIS
     Route: 048
  14. MAGNESIUM [Concomitant]
     Indication: BLOOD MAGNESIUM DECREASED
  15. OXYCONTIN [Concomitant]
     Indication: PAIN
     Route: 048
  16. ZOFRAN [Concomitant]
     Indication: NAUSEA
  17. COMPAZINE [Concomitant]
     Indication: NAUSEA
     Route: 048
  18. ALLOPURINOL [Concomitant]
     Indication: PROPHYLAXIS
  19. VANCOMYCIN [Concomitant]
     Indication: STAPHYLOCOCCAL INFECTION
  20. OXYCODONE [Concomitant]
     Indication: PAIN
     Route: 048

REACTIONS (1)
  - Mantle cell lymphoma [Fatal]
